FAERS Safety Report 9881132 (Version 1)
Quarter: 2014Q1

REPORT INFORMATION
  Report Type: Spontaneous
  Country: ES (occurrence: ES)
  Receive Date: 20140207
  Receipt Date: 20140207
  Transmission Date: 20141002
  Serious: Yes (Life-Threatening, Hospitalization)
  Sender: FDA-Public Use
  Company Number: ES-VERTEX PHARMACEUTICALS INC-2014-000603

PATIENT
  Age: 66 Year
  Sex: Male

DRUGS (3)
  1. INCIVO [Suspect]
     Indication: HIV INFECTION
     Dosage: 1125 MG, BID
     Route: 048
     Dates: start: 20130719, end: 20131001
  2. RIBAVIRIN [Suspect]
     Indication: HIV INFECTION
     Dosage: UNK, TID
     Route: 048
     Dates: start: 20130719, end: 20131001
  3. PEGASYS [Suspect]
     Indication: HIV INFECTION
     Dosage: DOSAGE FORM: UNSPECIFIED
     Route: 058
     Dates: start: 20130719, end: 20131001

REACTIONS (3)
  - Encephalopathy [Recovered/Resolved]
  - Ascites [Recovered/Resolved]
  - Off label use [Unknown]
